FAERS Safety Report 23223804 (Version 1)
Quarter: 2023Q4

REPORT INFORMATION
  Report Type: Spontaneous
  Country: MX (occurrence: MX)
  Receive Date: 20231124
  Receipt Date: 20231124
  Transmission Date: 20240110
  Serious: Yes (Hospitalization, Other)
  Sender: FDA-Public Use
  Company Number: MX-NOVITIUMPHARMA-2023MXNVP02023

PATIENT
  Age: 24 Year
  Sex: Female

DRUGS (5)
  1. PYRAZINAMIDE [Suspect]
     Active Substance: PYRAZINAMIDE
     Indication: Extrapulmonary tuberculosis
  2. PREDNISONE [Suspect]
     Active Substance: PREDNISONE
     Indication: Product used for unknown indication
  3. ISONIAZID [Concomitant]
     Active Substance: ISONIAZID
     Indication: Extrapulmonary tuberculosis
  4. RIFAMPIN [Concomitant]
     Active Substance: RIFAMPIN
     Indication: Extrapulmonary tuberculosis
  5. ETHAMBUTOL [Concomitant]
     Active Substance: ETHAMBUTOL HYDROCHLORIDE
     Indication: Extrapulmonary tuberculosis

REACTIONS (2)
  - Drug reaction with eosinophilia and systemic symptoms [Unknown]
  - Human herpesvirus 6 infection reactivation [Recovering/Resolving]
